FAERS Safety Report 9051066 (Version 1)
Quarter: 2013Q1

REPORT INFORMATION
  Report Type: Spontaneous
  Country: JP (occurrence: JP)
  Receive Date: 20130206
  Receipt Date: 20130206
  Transmission Date: 20140127
  Serious: Yes (Other)
  Sender: FDA-Public Use
  Company Number: JP-ELI_LILLY_AND_COMPANY-JP201301008698

PATIENT
  Age: 75 Year
  Sex: Female

DRUGS (2)
  1. FORTEO [Suspect]
     Dosage: UNK
     Route: 058
  2. CORTICOSTEROID NOS [Concomitant]
     Indication: COLLAGEN DISORDER
     Route: 048

REACTIONS (3)
  - Conjunctival vascular disorder [Unknown]
  - Lacrimation increased [Unknown]
  - Drug ineffective [Unknown]
